FAERS Safety Report 4428440-5 (Version None)
Quarter: 2004Q3

REPORT INFORMATION
  Report Type: 
  Country: None (occurrence: None)
  Receive Date: 20040810
  Receipt Date: 20040723
  Transmission Date: 20050211
  Serious: Yes (Hospitalization, Other)
  Sender: FDA-Public Use
  Company Number: 601427

PATIENT
  Age: 36 Year
  Sex: Male

DRUGS (2)
  1. FEIBA VH IMMUNO [Suspect]
     Indication: RETROPERITONEAL HAEMATOMA
     Dosage: INTERMITTENT; INTRAVENOUS
     Route: 042
  2. NOVOSEVEN [Suspect]
     Indication: RETROPERITONEAL HAEMORRHAGE
     Dosage: INTERMITT ENT; INTRAVENOUS
     Route: 042

REACTIONS (5)
  - ANAEMIA [None]
  - CONDITION AGGRAVATED [None]
  - DRUG INEFFECTIVE [None]
  - RETROPERITONEAL HAEMATOMA [None]
  - RETROPERITONEAL HAEMORRHAGE [None]
